FAERS Safety Report 23824981 (Version 2)
Quarter: 2024Q2

REPORT INFORMATION
  Report Type: Spontaneous
  Country: US (occurrence: US)
  Receive Date: 20240507
  Receipt Date: 20240514
  Transmission Date: 20240716
  Serious: No
  Sender: FDA-Public Use
  Company Number: US-BAYER-2024A059674

PATIENT
  Sex: Female

DRUGS (1)
  1. MIRENA [Suspect]
     Active Substance: LEVONORGESTREL
     Dosage: 20?G/DAY
     Route: 015

REACTIONS (6)
  - Uterine pain [None]
  - Uterine spasm [None]
  - Vaginal haemorrhage [None]
  - Heavy menstrual bleeding [None]
  - Dyspareunia [None]
  - Amenorrhoea [Recovered/Resolved]
